FAERS Safety Report 6169791-6 (Version None)
Quarter: 2009Q2

REPORT INFORMATION
  Report Type: 
  Country: None (occurrence: None)
  Receive Date: 20090424
  Receipt Date: 20090414
  Transmission Date: 20091009
  Serious: Yes (Other)
  Sender: FDA-Public Use
  Company Number: DSA_33531_2009

PATIENT
  Age: 70 Year
  Sex: Female

DRUGS (3)
  1. UNI MASDIL (UNI MASDIL - DILTIAZEM HYDROCHLORIDE) (NOT SPECIFIED) [Suspect]
     Indication: SUPRAVENTRICULAR EXTRASYSTOLES
     Dosage: (200 MG QD ORAL)
     Route: 048
     Dates: start: 20081125, end: 20081213
  2. SIMVASTATIN [Concomitant]
  3. ZOLPIDEM [Concomitant]

REACTIONS (2)
  - GINGIVAL BLEEDING [None]
  - GINGIVAL HYPERPLASIA [None]
